FAERS Safety Report 7563829-7 (Version None)
Quarter: 2011Q2

REPORT INFORMATION
  Report Type: 
  Country: None (occurrence: None)
  Receive Date: 20110622
  Receipt Date: 20110302
  Transmission Date: 20111010
  Serious: No
  Sender: FDA-Public Use
  Company Number: US-TYCO HEALTHCARE/MALLINCKRODT-T201100541

PATIENT
  Sex: Male

DRUGS (3)
  1. ULTRA-TECHNEKOW [Concomitant]
     Indication: RENAL SCAN
     Dosage: 1 MCI, SINGLE
     Dates: start: 20110302, end: 20110302
  2. TECHNESCAN MAG3 [Suspect]
     Indication: RENAL SCAN
     Dosage: UNK
     Route: 042
     Dates: start: 20110302, end: 20110302
  3. LASIX [Concomitant]
     Indication: RENAL SCAN
     Dosage: 12 MG, SINGLE
     Route: 042
     Dates: start: 20110302, end: 20110302

REACTIONS (1)
  - DRUG INEFFECTIVE [None]
